FAERS Safety Report 8573868-5 (Version None)
Quarter: 2012Q3

REPORT INFORMATION
  Report Type: 
  Country: None (occurrence: None)
  Receive Date: 20120806
  Receipt Date: 20120131
  Transmission Date: 20120928
  Serious: No
  Sender: FDA-Public Use
  Company Number: US-GLAXOSMITHKLINE-A0964015A

PATIENT
  Age: 28 Year
  Sex: Female

DRUGS (3)
  1. THYROID TAB [Concomitant]
  2. CLARITIN [Concomitant]
  3. FLUTICASONE PROPIONATE [Suspect]
     Indication: ASTHMA
     Dosage: 2PUFF TWICE PER DAY
     Route: 055
     Dates: start: 20110901

REACTIONS (3)
  - THROAT IRRITATION [None]
  - PRURITUS [None]
  - OEDEMA PERIPHERAL [None]
